FAERS Safety Report 8484209-6 (Version None)
Quarter: 2012Q3

REPORT INFORMATION
  Report Type: 
  Country: None (occurrence: None)
  Receive Date: 20120703
  Receipt Date: 20120621
  Transmission Date: 20120928
  Serious: Yes (Hospitalization)
  Sender: FDA-Public Use
  Company Number: US-SANOFI-AVENTIS-2012SA045137

PATIENT
  Age: 87 Year
  Sex: Female

DRUGS (1)
  1. ALLEGRA [Suspect]
     Route: 065
     Dates: start: 20120101, end: 20120101

REACTIONS (3)
  - DEHYDRATION [None]
  - INCONTINENCE [None]
  - VIRAL INFECTION [None]
